FAERS Safety Report 9722832 (Version 1)
Quarter: 2013Q4

REPORT INFORMATION
  Report Type: Spontaneous
  Country: US (occurrence: None)
  Receive Date: 20131127
  Receipt Date: 20131127
  Transmission Date: 20140711
  Serious: No
  Sender: FDA-Public Use
  Company Number: None

PATIENT
  Age: 51 Year
  Sex: Female
  Weight: 69.8 kg

DRUGS (3)
  1. CYCLOPHOSPHAMIDE [Suspect]
     Dates: end: 20130918
  2. DOXORUBICIN HYDROCHLORIDE [Suspect]
     Dates: end: 20130918
  3. PACLITAXEL [Suspect]
     Dates: end: 20131106

REACTIONS (5)
  - Malaise [None]
  - Pneumonitis [None]
  - Lung infection [None]
  - Hypoxia [None]
  - Sepsis [None]
